FAERS Safety Report 12070085 (Version 3)
Quarter: 2016Q2

REPORT INFORMATION
  Report Type: Spontaneous
  Country: US (occurrence: US)
  Receive Date: 20160211
  Receipt Date: 20160520
  Transmission Date: 20160815
  Serious: Yes (Other)
  Sender: FDA-Public Use
  Company Number: US-TEVA-633674USA

PATIENT
  Age: 37 Year
  Sex: Female

DRUGS (12)
  1. GABAPENTIN. [Concomitant]
     Active Substance: GABAPENTIN
  2. MAXALT [Concomitant]
     Active Substance: RIZATRIPTAN BENZOATE
  3. ZOFRAN [Concomitant]
     Active Substance: ONDANSETRON HYDROCHLORIDE
  4. ATORVASTATIN [Concomitant]
     Active Substance: ATORVASTATIN
  5. TRAZODONE [Concomitant]
     Active Substance: TRAZODONE HYDROCHLORIDE
  6. AMITRIPTYLINE [Concomitant]
     Active Substance: AMITRIPTYLINE
  7. PERCOCET [Concomitant]
     Active Substance: ACETAMINOPHEN\OXYCODONE HYDROCHLORIDE
  8. ZECUITY [Suspect]
     Active Substance: SUMATRIPTAN SUCCINATE
     Indication: HEADACHE
     Route: 062
  9. FLOMAX [Concomitant]
     Active Substance: TAMSULOSIN HYDROCHLORIDE
  10. ASPIRIN. [Concomitant]
     Active Substance: ASPIRIN
  11. XANAX [Concomitant]
     Active Substance: ALPRAZOLAM
  12. LISINOPRIL/HCTZ [Concomitant]
     Active Substance: HYDROCHLOROTHIAZIDE\LISINOPRIL

REACTIONS (10)
  - Erythema [Recovered/Resolved]
  - Application site discolouration [Recovered/Resolved]
  - Application site pain [Recovered/Resolved]
  - Application site warmth [Recovered/Resolved]
  - Application site erythema [Recovered/Resolved]
  - Application site urticaria [Recovered/Resolved]
  - Application site pruritus [Recovered/Resolved]
  - Device adhesion issue [Recovered/Resolved]
  - Application site paraesthesia [Recovered/Resolved]
  - Application site scar [Recovered/Resolved]

NARRATIVE: CASE EVENT DATE: 201601
